FAERS Safety Report 5091956-5 (Version None)
Quarter: 2006Q3

REPORT INFORMATION
  Report Type: 
  Country: None (occurrence: None)
  Receive Date: 20060825
  Receipt Date: 20060815
  Transmission Date: 20061208
  Serious: Yes (Disabling)
  Sender: FDA-Public Use
  Company Number: 112093ISR

PATIENT
  Sex: Female

DRUGS (8)
  1. PREDNISOLONE [Suspect]
     Dates: start: 20060209, end: 20060223
  2. LEVOFLOXACIN [Suspect]
     Indication: LOWER RESPIRATORY TRACT INFECTION
     Dosage: ORAL
     Route: 048
     Dates: start: 20060209, end: 20060216
  3. BECLOMETHASONE DIPROPIONATE [Concomitant]
  4. CODEINE LINCTUS [Concomitant]
  5. FLUTICASONE PROPIONATE [Concomitant]
  6. SALMETEROL [Concomitant]
  7. ALBUTEROL SPIROS [Concomitant]
  8. VERAPAMIL [Concomitant]

REACTIONS (2)
  - TENDON RUPTURE [None]
  - TENDONITIS [None]
